FAERS Safety Report 21290601 (Version 2)
Quarter: 2022Q3

REPORT INFORMATION
  Report Type: Report from Study
  Country: MX (occurrence: MX)
  Receive Date: 20220903
  Receipt Date: 20220908
  Transmission Date: 20221026
  Serious: Yes (Death)
  Sender: FDA-Public Use
  Company Number: MX-NOVARTISPH-NVSC2022MX198703

PATIENT
  Age: 74 Year
  Sex: Male

DRUGS (1)
  1. ENTRESTO [Suspect]
     Active Substance: SACUBITRIL\VALSARTAN
     Indication: Tachycardia
     Dosage: 1 DOSAGE FORM, BID (100 MG)
     Route: 048
     Dates: start: 20220603

REACTIONS (2)
  - Infarction [Fatal]
  - Product use in unapproved indication [Unknown]

NARRATIVE: CASE EVENT DATE: 20220616
